FAERS Safety Report 6833519-4 (Version None)
Quarter: 2010Q3

REPORT INFORMATION
  Report Type: 
  Country: None (occurrence: None)
  Receive Date: 20100712
  Receipt Date: 20070328
  Transmission Date: 20110219
  Serious: No
  Sender: FDA-Public Use
  Company Number: US-PFIZER INC-2007025264

PATIENT
  Age: 51 Year
  Sex: Female
  Weight: 99.79 kg

DRUGS (2)
  1. CHANTIX [Suspect]
     Dates: start: 20070327
  2. DIOVAN HCT [Concomitant]

REACTIONS (1)
  - ABNORMAL DREAMS [None]
